FAERS Safety Report 7699049-5 (Version None)
Quarter: 2011Q3

REPORT INFORMATION
  Report Type: 
  Country: None (occurrence: None)
  Receive Date: 20110819
  Receipt Date: 20110810
  Transmission Date: 20111222
  Serious: Yes (Hospitalization, Other)
  Sender: FDA-Public Use
  Company Number: US-ASTRAZENECA-2010SE18812

PATIENT
  Age: 36 Year
  Sex: Male

DRUGS (11)
  1. SEROQUEL [Suspect]
     Route: 048
  2. AMBIEN [Concomitant]
  3. ALPRAZOLAM [Concomitant]
  4. SEROQUEL [Suspect]
     Indication: BIPOLAR DISORDER
     Route: 048
  5. SEROQUEL [Suspect]
     Route: 048
  6. SEROQUEL [Suspect]
     Route: 048
  7. SEROQUEL [Suspect]
     Indication: SCHIZOPHRENIA, PARANOID TYPE
     Route: 048
  8. SEROQUEL [Suspect]
     Route: 048
  9. HALDOL [Suspect]
     Route: 065
  10. SEROQUEL [Suspect]
     Route: 048
  11. SEROQUEL [Suspect]
     Route: 048

REACTIONS (12)
  - PARANOIA [None]
  - HOMICIDAL IDEATION [None]
  - FEELING ABNORMAL [None]
  - FEAR [None]
  - NEGATIVE THOUGHTS [None]
  - HALLUCINATION, AUDITORY [None]
  - INCORRECT DOSE ADMINISTERED [None]
  - HALLUCINATION, VISUAL [None]
  - RESTLESSNESS [None]
  - DRUG EFFECT DECREASED [None]
  - MENTAL DISORDER [None]
  - SUICIDAL IDEATION [None]
